FAERS Safety Report 7349037 (Version 11)
Quarter: 2014Q1

REPORT INFORMATION
  Report Type: Report from Study
  Country: DE (occurrence: DE)
  Receive Date: 20100408
  Receipt Date: 20140123
  Transmission Date: 20141002
  Serious: Yes (Other)
  Sender: FDA-Public Use
  Company Number: PHHO2010DE05004

PATIENT
  Sex: 0

DRUGS (3)
  1. AMN107 [Suspect]
     Indication: CHRONIC MYELOID LEUKAEMIA
     Dosage: 400 MG, BID
     Route: 048
     Dates: start: 20080219, end: 20080227
  2. AMN107 [Suspect]
     Dosage: 400 MG, QD
     Route: 048
     Dates: start: 20080305, end: 20100317
  3. PRAVASTATIN [Suspect]
     Dosage: UNK
     Dates: start: 20090425, end: 20100228

REACTIONS (5)
  - Atrial fibrillation [Recovered/Resolved]
  - Dyspnoea exertional [Recovered/Resolved]
  - Atrial tachycardia [Recovered/Resolved]
  - Electrocardiogram QT prolonged [Recovered/Resolved]
  - Hypercholesterolaemia [Recovered/Resolved]
